FAERS Safety Report 23754300 (Version 1)
Quarter: 2024Q2

REPORT INFORMATION
  Report Type: Report from Study
  Country: US (occurrence: US)
  Receive Date: 20240418
  Receipt Date: 20240418
  Transmission Date: 20240716
  Serious: No
  Sender: FDA-Public Use
  Company Number: US-SANDOZ-SDZ2024US039668

PATIENT
  Sex: Male

DRUGS (2)
  1. OMNITROPE [Suspect]
     Active Substance: SOMATROPIN
     Indication: Hypopituitarism
     Dosage: 1.3 MG, QD (1.3 MG 2 DOSE EVERY N/A N/A)
     Route: 058
  2. OMNITROPE [Suspect]
     Active Substance: SOMATROPIN
     Indication: Hypopituitarism
     Dosage: 1.3 MG, QD (1.3 MG 2 DOSE EVERY N/A N/A)
     Route: 058

REACTIONS (3)
  - Incorrect dose administered [Unknown]
  - Device physical property issue [Unknown]
  - Wrong technique in product usage process [Unknown]
